FAERS Safety Report 10234792 (Version 3)
Quarter: 2014Q2

REPORT INFORMATION
  Report Type: Spontaneous
  Country: BR (occurrence: BR)
  Receive Date: 20140613
  Receipt Date: 20140626
  Transmission Date: 20141212
  Serious: Yes (Other)
  Sender: FDA-Public Use
  Company Number: BR-AMGEN INC.-BRACT2013004088

PATIENT
  Age: 41 Year
  Sex: Female
  Weight: 52 kg

DRUGS (9)
  1. ENBREL [Suspect]
     Indication: RHEUMATOID ARTHRITIS
     Dosage: 25 MG, 2 TIMES/WK
     Route: 058
     Dates: start: 201004, end: 201109
  2. ENBREL [Suspect]
     Dosage: 25 MG, BID
     Route: 058
     Dates: start: 20111002
  3. ENBREL [Suspect]
     Dosage: 25 MG, ONCE EVERY 10 DAYS
     Route: 058
     Dates: start: 201211
  4. ENBREL [Suspect]
     Dosage: 50 MG, ONCE A WEEK
     Route: 058
     Dates: start: 201306
  5. ENBREL [Suspect]
     Dosage: 50 MG, ONCE WEEKLY
     Route: 058
  6. ENBREL [Suspect]
     Dosage: 50 MG, EVERY TEN DAYS
     Route: 065
  7. METHOTREXATE SODIUM [Concomitant]
     Dosage: 0.8 ML (50MG), ONCE WEEKLY
     Route: 058
     Dates: start: 2010, end: 2012
  8. ARAVA [Concomitant]
     Dosage: UNK
  9. EVRA [Concomitant]
     Indication: CONTRACEPTION
     Dosage: UNK

REACTIONS (17)
  - Tuberculin test positive [Unknown]
  - Weight decreased [Unknown]
  - Wheezing [Unknown]
  - Nausea [Unknown]
  - Rheumatoid arthritis [Recovering/Resolving]
  - Myocardial infarction [Unknown]
  - Dizziness [Recovered/Resolved]
  - Hyperaesthesia [Unknown]
  - Pain [Recovered/Resolved]
  - Arthralgia [Unknown]
  - Pain in extremity [Unknown]
  - Neck pain [Unknown]
  - Back pain [Unknown]
  - Injection site pain [Unknown]
  - Injection site swelling [Unknown]
  - Injection site pruritus [Unknown]
  - Injection site haematoma [Unknown]
